FAERS Safety Report 6738854-6 (Version None)
Quarter: 2010Q2

REPORT INFORMATION
  Report Type: 
  Country: None (occurrence: None)
  Receive Date: 20100524
  Receipt Date: 20100512
  Transmission Date: 20101027
  Serious: Yes (Other)
  Sender: FDA-Public Use
  Company Number: PHHY2010JP31059

PATIENT
  Age: 37 Year
  Sex: Female

DRUGS (4)
  1. CYCLOSPORINE [Suspect]
     Indication: SJOGREN'S SYNDROME
     Dosage: 50 MG DAILY
     Route: 048
  2. PREDNISOLONE [Concomitant]
     Indication: SJOGREN'S SYNDROME
     Dosage: 40 MG, UNK
  3. METHYLPREDNISOLONE [Concomitant]
     Indication: SJOGREN'S SYNDROME
     Dosage: 8 MG, UNK
  4. STEROIDS NOS [Concomitant]
     Indication: POLYNEUROPATHY

REACTIONS (4)
  - FASCIAL OPERATION [None]
  - IMPAIRED HEALING [None]
  - SKIN GRAFT [None]
  - SKIN GRAFT FAILURE [None]
